FAERS Safety Report 8401285-7 (Version None)
Quarter: 2012Q2

REPORT INFORMATION
  Report Type: 
  Country: None (occurrence: None)
  Receive Date: 20120530
  Receipt Date: 20120530
  Transmission Date: 20120825
  Serious: Yes (Hospitalization)
  Sender: FDA-Public Use
  Company Number: None

PATIENT
  Age: 83 Year
  Sex: Male
  Weight: 95 kg

DRUGS (2)
  1. MULTAQ [Suspect]
     Indication: ATRIAL FIBRILLATION
     Dosage: 400MG BID PO
     Route: 048
     Dates: start: 20111014, end: 20111023
  2. PRADAXA [Suspect]
     Dosage: 150MG BID PO
     Route: 048
     Dates: start: 20111011, end: 20111023

REACTIONS (5)
  - PULMONARY FIBROSIS [None]
  - MYOPATHY [None]
  - INTERSTITIAL LUNG DISEASE [None]
  - DRUG INTERACTION [None]
  - PULMONARY ALVEOLAR HAEMORRHAGE [None]
